FAERS Safety Report 7561103-6 (Version None)
Quarter: 2011Q2

REPORT INFORMATION
  Report Type: 
  Country: None (occurrence: None)
  Receive Date: 20110621
  Receipt Date: 20110615
  Transmission Date: 20111010
  Serious: Yes (Other)
  Sender: FDA-Public Use
  Company Number: US-PFIZER INC-2011132160

PATIENT
  Sex: Female
  Weight: 58.503 kg

DRUGS (4)
  1. ZOLOFT [Suspect]
     Indication: DEPRESSION
     Dosage: 25 MG, UNK
     Route: 048
  2. ZOLOFT [Suspect]
     Dosage: 50 MG, 2X/DAY
     Route: 048
  3. SYNTHROID [Concomitant]
     Dosage: 112 MG, DAILY
  4. ZOLOFT [Suspect]
     Dosage: 50 MG, UNK

REACTIONS (11)
  - URTICARIA [None]
  - SKIN DISORDER [None]
  - SCAR [None]
  - SOMNOLENCE [None]
  - DISTURBANCE IN ATTENTION [None]
  - WEIGHT INCREASED [None]
  - CONFUSIONAL STATE [None]
  - MEMORY IMPAIRMENT [None]
  - HAIR DISORDER [None]
  - ACCIDENT [None]
  - ALOPECIA [None]
